FAERS Safety Report 10180644 (Version 1)
Quarter: 2014Q2

REPORT INFORMATION
  Report Type: Spontaneous
  Country: US (occurrence: US)
  Receive Date: 20140519
  Receipt Date: 20140519
  Transmission Date: 20141212
  Serious: No
  Sender: FDA-Public Use
  Company Number: US-AMGEN INC.-USASP2014020993

PATIENT
  Age: 84 Year
  Sex: Female

DRUGS (7)
  1. PROLIA [Suspect]
     Indication: OSTEOPOROSIS POSTMENOPAUSAL
     Dosage: UNK
     Route: 065
     Dates: start: 201403
  2. CORTISONE [Concomitant]
     Dosage: 3 TO 4 TIMES A YEAR
  3. ATORVASTATIN [Concomitant]
  4. ASPIRIN [Concomitant]
  5. CALCIUM [Concomitant]
  6. ATENOLOL [Concomitant]
  7. CLOPIDOGREL [Concomitant]

REACTIONS (1)
  - Pain in extremity [Not Recovered/Not Resolved]
